FAERS Safety Report 6064780-4 (Version None)
Quarter: 2009Q1

REPORT INFORMATION
  Report Type: 
  Country: None (occurrence: None)
  Receive Date: 20090204
  Receipt Date: 20090127
  Transmission Date: 20090719
  Serious: Yes (Hospitalization, Other)
  Sender: FDA-Public Use
  Company Number: US-PFIZER INC-2005066602

PATIENT
  Sex: Male

DRUGS (16)
  1. CAVERJECT [Suspect]
     Indication: ERECTILE DYSFUNCTION
     Route: 065
     Dates: end: 20050101
  2. CLOPIDOGREL BISULFATE [Concomitant]
     Route: 065
     Dates: start: 20000101
  3. METFORMIN HCL [Concomitant]
     Route: 048
  4. PIOGLITAZONE HCL [Concomitant]
     Route: 048
  5. GLIPIZIDE [Concomitant]
     Route: 065
  6. SULINDAC [Concomitant]
     Route: 065
  7. FUROSEMIDE [Concomitant]
     Route: 065
  8. ISOSORBIDE MONONITRATE [Concomitant]
     Route: 065
  9. ENALAPRIL MALEATE [Concomitant]
     Route: 065
  10. NITROGLYCERIN [Concomitant]
     Route: 065
  11. IMIPRAMINE HYDROCHLORIDE [Concomitant]
     Route: 065
  12. IMIPRAMINE [Concomitant]
     Route: 065
  13. CLONAZEPAM [Concomitant]
     Route: 065
  14. CARBAMAZEPINE [Concomitant]
     Route: 065
  15. ACETYLSALICYLIC ACID SRT [Concomitant]
     Route: 065
  16. CRESTOR [Concomitant]
     Route: 048

REACTIONS (9)
  - BLOOD CHOLESTEROL INCREASED [None]
  - BLOOD GLUCOSE ABNORMAL [None]
  - CARDIAC DISORDER [None]
  - CARDIAC OPERATION [None]
  - DEPRESSION [None]
  - HEADACHE [None]
  - INSOMNIA [None]
  - NERVOUSNESS [None]
  - STENT PLACEMENT [None]
